FAERS Safety Report 18516928 (Version 1)
Quarter: 2020Q4

REPORT INFORMATION
  Report Type: Spontaneous
  Country: US (occurrence: US)
  Receive Date: 20201118
  Receipt Date: 20201118
  Transmission Date: 20210114
  Serious: Yes (Life-Threatening, Hospitalization, Other)
  Sender: FDA-Public Use
  Company Number: US-GLAXOSMITHKLINE-US2020GSK225898

PATIENT
  Age: 16 Month
  Sex: Male

DRUGS (2)
  1. COCAIN [Suspect]
     Active Substance: COCAINE
     Indication: PRODUCT USED FOR UNKNOWN INDICATION
     Dosage: UNK
     Route: 048
  2. BUPROPION. [Suspect]
     Active Substance: BUPROPION
     Indication: PRODUCT USED FOR UNKNOWN INDICATION
     Dosage: UNK
     Route: 048

REACTIONS (16)
  - Hyporesponsive to stimuli [Recovered/Resolved]
  - Unresponsive to stimuli [Recovered/Resolved]
  - Dysstasia [Recovered/Resolved]
  - Seizure [Recovered/Resolved]
  - Somnolence [Recovered/Resolved]
  - Hypotonia [Recovered/Resolved]
  - Electrocardiogram PR prolongation [Recovered/Resolved]
  - Right ventricular hypertrophy [Unknown]
  - Brugada syndrome [Recovered/Resolved]
  - Bundle branch block right [Recovered/Resolved]
  - Mental status changes [Recovered/Resolved]
  - Arrhythmia [Recovered/Resolved]
  - Mitral valve incompetence [Recovered/Resolved]
  - Lethargy [Recovered/Resolved]
  - Postictal state [Recovered/Resolved]
  - Accidental exposure to product by child [Unknown]
